FAERS Safety Report 8350754-7 (Version None)
Quarter: 2012Q2

REPORT INFORMATION
  Report Type: 
  Country: None (occurrence: None)
  Receive Date: 20120510
  Receipt Date: 20120503
  Transmission Date: 20120825
  Serious: Yes (Hospitalization, Congenital Anomaly)
  Sender: FDA-Public Use
  Company Number: US-GLAXOSMITHKLINE-A0976964A

PATIENT
  Sex: Female
  Weight: 2.9 kg

DRUGS (2)
  1. PAXIL [Suspect]
     Indication: PRODUCT USED FOR UNKNOWN INDICATION
     Dosage: 10MG PER DAY
     Route: 064
  2. HALDOL [Concomitant]
     Dosage: 1MG PER DAY
     Route: 064

REACTIONS (9)
  - PULMONARY VALVE STENOSIS [None]
  - RENAL DISORDER [None]
  - ANAL ATRESIA [None]
  - PATENT DUCTUS ARTERIOSUS [None]
  - BODY HEIGHT BELOW NORMAL [None]
  - FOETAL EXPOSURE DURING PREGNANCY [None]
  - PULMONARY HYPERTENSION [None]
  - CONGENITAL CYSTIC KIDNEY DISEASE [None]
  - ATRIAL SEPTAL DEFECT [None]
